FAERS Safety Report 8899873 (Version 3)
Quarter: 2013Q2

REPORT INFORMATION
  Report Type: Report from Study
  Country: JP (occurrence: JP)
  Receive Date: 20121109
  Receipt Date: 20130527
  Transmission Date: 20140414
  Serious: Yes (Hospitalization)
  Sender: FDA-Public Use
  Company Number: PHHY2012JP102446

PATIENT
  Age: 31 Year
  Sex: Male
  Weight: 61 kg

DRUGS (10)
  1. FTY 720 [Suspect]
     Indication: MULTIPLE SCLEROSIS
     Dosage: 0.5 MG, QD
     Route: 048
     Dates: start: 20120118, end: 20121018
  2. PURSENNID [Concomitant]
     Indication: CONSTIPATION
     Dosage: 36 MG, UNK
     Route: 048
  3. AVONEX [Concomitant]
     Indication: MULTIPLE SCLEROSIS
     Route: 030
     Dates: end: 20110622
  4. BETAFERON [Concomitant]
     Indication: MULTIPLE SCLEROSIS
     Route: 058
     Dates: start: 20110704, end: 20120116
  5. SOL-MELCORT [Concomitant]
     Indication: MULTIPLE SCLEROSIS
     Dosage: 1000 MG, UNK
     Route: 042
     Dates: start: 20120121
  6. SOL-MELCORT [Concomitant]
     Dosage: 1000 MG, UNK
  7. SOL-MELCORT [Concomitant]
     Dosage: 1000 MG, UNK
  8. SOL-MELCORT [Concomitant]
     Dosage: 1000 MG, UNK
     Dates: end: 20120501
  9. TAKEPRON [Concomitant]
     Indication: GASTROOESOPHAGEAL REFLUX DISEASE
     Dosage: 15 MG, UNK
     Route: 048
     Dates: start: 20121018
  10. EURODIN [Concomitant]
     Indication: INSOMNIA
     Dosage: 4 MG, UNK
     Route: 048

REACTIONS (5)
  - Coordination abnormal [Recovering/Resolving]
  - Muscular weakness [Recovered/Resolved]
  - Campylobacter infection [Unknown]
  - Bacteraemia [Recovered/Resolved]
  - Pyrexia [Recovered/Resolved]
